FAERS Safety Report 6447043-4 (Version None)
Quarter: 2009Q4

REPORT INFORMATION
  Report Type: 
  Country: None (occurrence: None)
  Receive Date: 20091110
  Receipt Date: 20090717
  Transmission Date: 20100525
  Serious: No
  Sender: FDA-Public Use
  Company Number: 1000007581

PATIENT
  Age: 60 Year
  Sex: Female

DRUGS (10)
  1. SAVELLA [Suspect]
     Indication: FIBROMYALGIA
     Dosage: 12.5 MG (12.5 MG, 1 IN 1 D), ORAL
     Route: 048
     Dates: start: 20090709, end: 20090709
  2. METFORMIN HCL [Concomitant]
  3. AMLODIPINE [Concomitant]
  4. SYNTHROID [Concomitant]
  5. ARMOUR [Concomitant]
  6. LIPITOR [Concomitant]
  7. QUINAPRIL [Concomitant]
  8. AMBIEN CR [Concomitant]
  9. LYRICA [Concomitant]
  10. GLYBURIDE [Concomitant]

REACTIONS (4)
  - ABDOMINAL PAIN UPPER [None]
  - HYPERHIDROSIS [None]
  - NAUSEA [None]
  - PALPITATIONS [None]
